FAERS Safety Report 18208564 (Version 10)
Quarter: 2024Q1

REPORT INFORMATION
  Report Type: Spontaneous
  Country: US (occurrence: US)
  Receive Date: 20200828
  Receipt Date: 20240109
  Transmission Date: 20240410
  Serious: No
  Sender: FDA-Public Use
  Company Number: US-PFIZER INC-2020332049

PATIENT
  Age: 64 Year
  Sex: Female
  Weight: 75.3 kg

DRUGS (3)
  1. IBRANCE [Suspect]
     Active Substance: PALBOCICLIB
     Indication: Breast cancer metastatic
     Dosage: 125 MG, CYCLIC (1 TABLET A DAY FOR 21 DAYS, AND THEN 7 DAYS OFF)
     Route: 048
     Dates: start: 20191220
  2. IBRANCE [Suspect]
     Active Substance: PALBOCICLIB
     Dosage: 100 MG
  3. LETROZOLE [Concomitant]
     Active Substance: LETROZOLE
     Indication: Breast cancer metastatic
     Dosage: 2.5 MG, DAILY
     Route: 048
     Dates: start: 20191204

REACTIONS (9)
  - Nausea [Unknown]
  - Alopecia [Recovered/Resolved]
  - White blood cell count decreased [Unknown]
  - Pyrexia [Unknown]
  - Viral infection [Unknown]
  - Insomnia [Unknown]
  - Stress [Unknown]
  - Off label use [Unknown]
  - Dizziness [Unknown]

NARRATIVE: CASE EVENT DATE: 20191220
